FAERS Safety Report 18237033 (Version 1)
Quarter: 2020Q3

REPORT INFORMATION
  Report Type: Spontaneous
  Country: US (occurrence: US)
  Receive Date: 20200907
  Receipt Date: 20200907
  Transmission Date: 20201103
  Serious: No
  Sender: FDA-Public Use
  Company Number: US-LUNDBECK-DKLU3019770

PATIENT
  Age: 24 Year
  Sex: Female

DRUGS (2)
  1. CORLANOR [Concomitant]
     Active Substance: IVABRADINE HYDROCHLORIDE
     Indication: PRODUCT USED FOR UNKNOWN INDICATION
     Route: 065
  2. NORTHERA [Suspect]
     Active Substance: DROXIDOPA
     Indication: POSTURAL ORTHOSTATIC TACHYCARDIA SYNDROME
     Route: 048
     Dates: start: 20200701

REACTIONS (2)
  - Furuncle [Not Recovered/Not Resolved]
  - Fatigue [Not Recovered/Not Resolved]

NARRATIVE: CASE EVENT DATE: 202008
